FAERS Safety Report 18348402 (Version 1)
Quarter: 2020Q4

REPORT INFORMATION
  Report Type: Spontaneous
  Country: US (occurrence: US)
  Receive Date: 20201005
  Receipt Date: 20201005
  Transmission Date: 20210114
  Serious: Yes (Hospitalization)
  Sender: FDA-Public Use
  Company Number: None

PATIENT
  Sex: Female

DRUGS (33)
  1. CITALOPRAM [Concomitant]
     Active Substance: CITALOPRAM HYDROBROMIDE
  2. EPINEPHRINE. [Concomitant]
     Active Substance: EPINEPHRINE
  3. HYDROMORPHON [Concomitant]
     Active Substance: HYDROMORPHONE
  4. METAXALONE. [Concomitant]
     Active Substance: METAXALONE
  5. ONDANSETRON [Concomitant]
     Active Substance: ONDANSETRON
  6. PROMETHAZINE [Concomitant]
     Active Substance: PROMETHAZINE HYDROCHLORIDE
  7. CYCLOBENZAPR [Concomitant]
     Active Substance: CYCLOBENZAPRINE
  8. LOSARTAN. [Concomitant]
     Active Substance: LOSARTAN
  9. VIIBRYD [Concomitant]
     Active Substance: VILAZODONE HYDROCHLORIDE
  10. DUPIXENT [Concomitant]
     Active Substance: DUPILUMAB
  11. KETOROLAC [Concomitant]
     Active Substance: KETOROLAC TROMETHAMINE
  12. MUPIROCIN. [Concomitant]
     Active Substance: MUPIROCIN
  13. TRAZODONE [Concomitant]
     Active Substance: TRAZODONE HYDROCHLORIDE
  14. BROM/PSE/DM [Concomitant]
  15. CEFDINIR. [Concomitant]
     Active Substance: CEFDINIR
  16. METRONIDAZOL [Concomitant]
     Active Substance: METRONIDAZOLE
  17. PREDNISONE. [Concomitant]
     Active Substance: PREDNISONE
  18. BYSTOLIC [Concomitant]
     Active Substance: NEBIVOLOL HYDROCHLORIDE
  19. CLOBETASOL [Concomitant]
     Active Substance: CLOBETASOL
  20. SUMATRIPTAN. [Concomitant]
     Active Substance: SUMATRIPTAN
  21. MELOXICAM. [Concomitant]
     Active Substance: MELOXICAM
  22. COSENTYX [Suspect]
     Active Substance: SECUKINUMAB
     Indication: PSORIASIS
     Route: 058
     Dates: start: 202006
  23. BELSOMRA [Concomitant]
     Active Substance: SUVOREXANT
  24. VALACYCLOVIR [Concomitant]
     Active Substance: VALACYCLOVIR HYDROCHLORIDE
  25. CIPROFLOXACN [Concomitant]
     Active Substance: CIPROFLOXACIN
  26. DEXILANT [Concomitant]
     Active Substance: DEXLANSOPRAZOLE
  27. ESCITALOPRAM [Concomitant]
     Active Substance: ESCITALOPRAM OXALATE
  28. ETODOLAC. [Concomitant]
     Active Substance: ETODOLAC
  29. CLONAZEPAM. [Concomitant]
     Active Substance: CLONAZEPAM
  30. FAMOTIDINE. [Concomitant]
     Active Substance: FAMOTIDINE
  31. PANTOPRAZOLE [Concomitant]
     Active Substance: PANTOPRAZOLE
  32. AZITHROMYCIN ANHYDROUS. [Concomitant]
     Active Substance: AZITHROMYCIN ANHYDROUS
  33. PROAIR HFA [Concomitant]
     Active Substance: ALBUTEROL SULFATE

REACTIONS (1)
  - Nephrolithiasis [None]
